FAERS Safety Report 5659849-X (Version None)
Quarter: 2008Q1

REPORT INFORMATION
  Report Type: 
  Country: None (occurrence: None)
  Receive Date: 20080311
  Receipt Date: 20070904
  Transmission Date: 20080703
  Serious: Yes (Hospitalization)
  Sender: FDA-Public Use
  Company Number: US-BAYER-200712432BCC

PATIENT
  Age: 57 Year
  Sex: Female
  Weight: 54 kg

DRUGS (7)
  1. ALEVE [Suspect]
     Indication: BACK PAIN
     Route: 048
  2. ALEVE [Suspect]
     Indication: PAIN
     Dosage: TOTAL DAILY DOSE: 220 MG  UNIT DOSE: 220 MG
     Route: 048
     Dates: start: 20070725, end: 20070729
  3. IBUPROFEN [Suspect]
     Indication: BACK PAIN
  4. EXCEDRIN [Suspect]
     Indication: BACK PAIN
  5. OMEPRAZOLE [Concomitant]
     Indication: PAIN
     Dates: start: 20070201
  6. LORAZEPAM [Concomitant]
     Indication: INSOMNIA
  7. SENNA [Concomitant]
     Indication: CONSTIPATION

REACTIONS (23)
  - ABDOMINAL DISTENSION [None]
  - ABDOMINAL PAIN UPPER [None]
  - BLOOD PRESSURE INCREASED [None]
  - BODY TEMPERATURE DECREASED [None]
  - CHEST DISCOMFORT [None]
  - CHILLS [None]
  - CONSTIPATION [None]
  - CONTUSION [None]
  - DRUG HYPERSENSITIVITY [None]
  - DRUG INTOLERANCE [None]
  - DYSPEPSIA [None]
  - ERYTHEMA [None]
  - FLATULENCE [None]
  - HEADACHE [None]
  - NAUSEA [None]
  - PYREXIA [None]
  - RASH MACULAR [None]
  - RASH MACULO-PAPULAR [None]
  - RESPIRATORY RATE INCREASED [None]
  - SKIN EXFOLIATION [None]
  - SKIN REACTION [None]
  - TENDERNESS [None]
  - VOMITING [None]
